FAERS Safety Report 7129202-0 (Version None)
Quarter: 2010Q4

REPORT INFORMATION
  Report Type: 
  Country: None (occurrence: None)
  Receive Date: 20101130
  Receipt Date: 20101119
  Transmission Date: 20110411
  Serious: Yes (Hospitalization)
  Sender: FDA-Public Use
  Company Number: US-MERCK-1011USA03214

PATIENT
  Age: 33 Year
  Sex: Female

DRUGS (6)
  1. HYDROCORTONE [Suspect]
     Route: 048
  2. HYDROCORTONE [Suspect]
     Route: 048
  3. HYDROCORTONE [Suspect]
     Route: 048
  4. HYDROCORTONE [Suspect]
     Route: 048
  5. LEVOTHYROXINE SODIUM [Concomitant]
     Route: 065
  6. HORMONAL CONTRACEPTIVES (UNSPECIFIED) [Concomitant]
     Route: 065

REACTIONS (3)
  - BENIGN INTRACRANIAL HYPERTENSION [None]
  - DRUG INTOLERANCE [None]
  - VOMITING [None]
